FAERS Safety Report 8394021-4 (Version None)
Quarter: 2012Q2

REPORT INFORMATION
  Report Type: 
  Country: None (occurrence: None)
  Receive Date: 20120530
  Receipt Date: 20120518
  Transmission Date: 20120825
  Serious: Yes (Hospitalization, Other)
  Sender: FDA-Public Use
  Company Number: US-SANOFI-AVENTIS-2012SA026142

PATIENT
  Sex: Male

DRUGS (1)
  1. LANTUS [Suspect]
     Route: 058

REACTIONS (1)
  - RENAL DISORDER [None]
